FAERS Safety Report 4934716-5 (Version None)
Quarter: 2006Q1

REPORT INFORMATION
  Report Type: 
  Country: None (occurrence: None)
  Receive Date: 20060307
  Receipt Date: 20051026
  Transmission Date: 20060701
  Serious: Yes (Hospitalization, Disabling)
  Sender: FDA-Public Use
  Company Number: US-MERCK-0510USA09492

PATIENT
  Age: 47 Year
  Sex: Male
  Weight: 136 kg

DRUGS (16)
  1. VIOXX [Suspect]
     Route: 048
     Dates: start: 20010102, end: 20021217
  2. LORCET-HD [Concomitant]
     Route: 065
     Dates: start: 20000501
  3. ASPIRIN [Concomitant]
     Route: 065
     Dates: start: 19970101
  4. TOPROL-XL [Concomitant]
     Route: 048
     Dates: start: 19970101
  5. NORVASC [Concomitant]
     Route: 065
     Dates: start: 19950101
  6. GLUCOPHAGE [Concomitant]
     Route: 065
     Dates: start: 20010501
  7. GLUCOSAMINE [Concomitant]
     Route: 065
  8. HYDROCODONE HYDROCHLORIDE [Concomitant]
     Route: 065
     Dates: start: 20020601
  9. DEPO-MEDROL [Concomitant]
     Route: 051
  10. SPORANOX [Concomitant]
     Route: 065
  11. MARCAINE [Concomitant]
     Route: 051
  12. ARISTOSPAN [Concomitant]
     Route: 051
  13. LORTAB [Concomitant]
     Route: 065
  14. CELESTONE TAB [Concomitant]
     Route: 051
  15. ZOCOR [Concomitant]
     Route: 048
  16. METHOCARBAMOL [Concomitant]
     Route: 065
     Dates: start: 20000501

REACTIONS (6)
  - ACUTE MYOCARDIAL INFARCTION [None]
  - BLOOD CHOLESTEROL INCREASED [None]
  - BLOOD TRIGLYCERIDES INCREASED [None]
  - CORONARY ARTERY DISEASE [None]
  - DEPRESSION [None]
  - SUPRAVENTRICULAR EXTRASYSTOLES [None]
